FAERS Safety Report 20566570 (Version 2)
Quarter: 2022Q1

REPORT INFORMATION
  Report Type: Report from Study
  Country: CA (occurrence: CA)
  Receive Date: 20220308
  Receipt Date: 20220311
  Transmission Date: 20220423
  Serious: Yes (Other)
  Sender: FDA-Public Use
  Company Number: CA-MYLANLABS-2022M1018052

PATIENT
  Age: 40 Year
  Sex: Female

DRUGS (1)
  1. HULIO [Suspect]
     Active Substance: ADALIMUMAB-FKJP
     Indication: Crohn^s disease
     Dosage: 40 MILLIGRAM, BIWEEKLY

REACTIONS (6)
  - Oropharyngeal blistering [Unknown]
  - Vulvovaginal pruritus [Unknown]
  - Blister [Unknown]
  - Iron deficiency [Unknown]
  - Abdominal pain [Recovering/Resolving]
  - Proctalgia [Recovering/Resolving]
